FAERS Safety Report 6931239-9 (Version None)
Quarter: 2010Q3

REPORT INFORMATION
  Report Type: 
  Country: None (occurrence: None)
  Receive Date: 20100816
  Receipt Date: 20100806
  Transmission Date: 20110219
  Serious: Yes (Death)
  Sender: FDA-Public Use
  Company Number: 2010EU003784

PATIENT
  Age: 55 Year
  Sex: Male
  Weight: 72 kg

DRUGS (2)
  1. MYCAMINE [Suspect]
     Indication: PROPHYLAXIS
     Dosage: 50 MG, TOTAL DOSE, IV NOS
     Route: 042
     Dates: start: 20100711, end: 20100721
  2. NOXAFIL [Concomitant]

REACTIONS (6)
  - ASPARTATE AMINOTRANSFERASE INCREASED [None]
  - BLOOD BILIRUBIN INCREASED [None]
  - DRUG INTERACTION [None]
  - GAMMA-GLUTAMYLTRANSFERASE INCREASED [None]
  - RENAL FAILURE ACUTE [None]
  - SEPSIS [None]
